FAERS Safety Report 16497442 (Version 1)
Quarter: 2019Q2

REPORT INFORMATION
  Report Type: Spontaneous
  Country: US (occurrence: US)
  Receive Date: 20190628
  Receipt Date: 20190628
  Transmission Date: 20190711
  Serious: No
  Sender: FDA-Public Use
  Company Number: US-VIFOR (INTERNATIONAL) INC.-VIT-2016-03269

PATIENT
  Age: 79 Year
  Sex: Male

DRUGS (16)
  1. DUTASTERIDE. [Concomitant]
     Active Substance: DUTASTERIDE
  2. TAMSULOSIN [Concomitant]
     Active Substance: TAMSULOSIN
  3. VELTASSA [Suspect]
     Active Substance: PATIROMER
     Indication: HYPERKALAEMIA
     Route: 048
     Dates: start: 20160528
  4. ASPIRIN. [Concomitant]
     Active Substance: ASPIRIN
  5. MULTVIT [Concomitant]
  6. OCUVITE [Concomitant]
     Active Substance: VITAMINS
  7. CARVEDILOL. [Concomitant]
     Active Substance: CARVEDILOL
  8. HUMALOG [Concomitant]
     Active Substance: INSULIN LISPRO
  9. SIMVASTATIN. [Concomitant]
     Active Substance: SIMVASTATIN
  10. CLARITIN [Concomitant]
     Active Substance: LORATADINE
  11. FOLTANX [Concomitant]
  12. LEVEMIR [Concomitant]
     Active Substance: INSULIN DETEMIR
  13. PANTOPRAZOLE [Concomitant]
     Active Substance: PANTOPRAZOLE
  14. RAMIPRIL. [Concomitant]
     Active Substance: RAMIPRIL
  15. TYLENOL [Concomitant]
     Active Substance: ACETAMINOPHEN
  16. DELZICOLE [Concomitant]

REACTIONS (1)
  - Constipation [Not Recovered/Not Resolved]

NARRATIVE: CASE EVENT DATE: 20160527
